FAERS Safety Report 9186110 (Version 1)
Quarter: 2013Q1

REPORT INFORMATION
  Report Type: Spontaneous
  Country: US (occurrence: None)
  Receive Date: 20130321
  Receipt Date: 20130321
  Transmission Date: 20140127
  Serious: Yes (Life-Threatening, Hospitalization)
  Sender: FDA-Public Use
  Company Number: 1635949

PATIENT
  Age: 66 Year
  Sex: Female
  Weight: 58.5 kg

DRUGS (3)
  1. CEFTAZIDIME [Suspect]
     Indication: PYREXIA
     Route: 042
     Dates: start: 20130225
  2. CEFTAZIDIME [Suspect]
     Indication: CHILLS
     Route: 042
     Dates: start: 20130225
  3. VANCOMYCIN HYDROCHLORIDE [Suspect]
     Route: 042
     Dates: start: 20130225

REACTIONS (1)
  - Cardiac arrest [None]
